FAERS Safety Report 12220779 (Version 1)
Quarter: 2016Q1

REPORT INFORMATION
  Report Type: Spontaneous
  Country: US (occurrence: US)
  Receive Date: 20160330
  Receipt Date: 20160330
  Transmission Date: 20160526
  Serious: No
  Sender: FDA-Public Use
  Company Number: US-AMGEN-USASP2016037077

PATIENT
  Sex: Female

DRUGS (1)
  1. ENBREL [Suspect]
     Active Substance: ETANERCEPT
     Indication: RHEUMATOID ARTHRITIS
     Dosage: 50 MG QWK
     Route: 065

REACTIONS (8)
  - Injection site swelling [Unknown]
  - Migraine [Unknown]
  - Headache [Unknown]
  - Sensory disturbance [Unknown]
  - Injection site erythema [Unknown]
  - Maternal exposure during pregnancy [Unknown]
  - Injection site pruritus [Unknown]
  - Injection site reaction [Unknown]
